FAERS Safety Report 22279665 (Version 2)
Quarter: 2023Q2

REPORT INFORMATION
  Report Type: Spontaneous
  Country: JP (occurrence: JP)
  Receive Date: 20230503
  Receipt Date: 20230601
  Transmission Date: 20230722
  Serious: Yes (Other)
  Sender: FDA-Public Use
  Company Number: JP-OTSUKA-2022_039175

PATIENT
  Age: 33 Year
  Sex: Female

DRUGS (2)
  1. ABILIFY [Suspect]
     Active Substance: ARIPIPRAZOLE
     Indication: Schizophrenia
     Dosage: 400 MG/SHOT/4W
     Route: 030
     Dates: start: 201809
  2. ABILIFY [Suspect]
     Active Substance: ARIPIPRAZOLE
     Dosage: 300 MG/SHOT/4W
     Route: 030
     Dates: start: 20220822, end: 20220926

REACTIONS (3)
  - Talipes [Unknown]
  - Dystonia [Recovering/Resolving]
  - Mastication disorder [Recovering/Resolving]

NARRATIVE: CASE EVENT DATE: 20220501
